FAERS Safety Report 10062163 (Version 3)
Quarter: 2014Q2

REPORT INFORMATION
  Report Type: Spontaneous
  Country: US (occurrence: None)
  Receive Date: 20140403
  Receipt Date: 20140425
  Transmission Date: 20141212
  Serious: Yes (Death, Life-Threatening, Hospitalization, Other)
  Sender: FDA-Public Use
  Company Number: UTC-046401

PATIENT
  Age: 6 Year
  Sex: Female
  Weight: 16 kg

DRUGS (2)
  1. TYVASO [Suspect]
     Indication: PULMONARY ARTERIAL HYPERTENSION
     Route: 055
     Dates: start: 20130412
  2. SILDENAFIL CITRATE (SILDENAFIL CITRATE) [Concomitant]

REACTIONS (11)
  - Death [None]
  - Haemoptysis [None]
  - Cardiovascular disorder [None]
  - Thrombosis [None]
  - Pulmonary hypertension [None]
  - Pulmonary haemorrhage [None]
  - Congenital diaphragmatic hernia [None]
  - Treatment noncompliance [None]
  - Acute right ventricular failure [None]
  - Acute respiratory distress syndrome [None]
  - Pneumonia [None]
